FAERS Safety Report 23975803 (Version 1)
Quarter: 2024Q2

REPORT INFORMATION
  Report Type: Spontaneous
  Country: BR (occurrence: BR)
  Receive Date: 20240614
  Receipt Date: 20240614
  Transmission Date: 20240715
  Serious: Yes (Hospitalization, Other)
  Sender: FDA-Public Use
  Company Number: BR-STRIDES ARCOLAB LIMITED-2024SP006832

PATIENT
  Age: 6 Decade
  Sex: Female

DRUGS (19)
  1. PREDNISOLONE [Suspect]
     Active Substance: PREDNISOLONE
     Indication: Follicular lymphoma
     Dosage: UNK (RCVP THERAPY)
     Route: 065
  2. PREDNISOLONE [Suspect]
     Active Substance: PREDNISOLONE
     Indication: Plasmacytosis
     Dosage: UNK (R-CHOP THERAPIES)
     Route: 065
  3. PREDNISOLONE [Suspect]
     Active Substance: PREDNISOLONE
     Dosage: UNK (R-CHOEP THERAPIES)
     Route: 065
  4. ETOPOSIDE [Suspect]
     Active Substance: ETOPOSIDE
     Indication: Follicular lymphoma
     Dosage: UNK (R-CHOP THERAPIES)
     Route: 065
  5. ETOPOSIDE [Suspect]
     Active Substance: ETOPOSIDE
     Indication: Plasmacytosis
  6. CYCLOPHOSPHAMIDE [Suspect]
     Active Substance: CYCLOPHOSPHAMIDE
     Indication: Follicular lymphoma
     Dosage: UNK (RCVP THERAPY)
     Route: 065
  7. CYCLOPHOSPHAMIDE [Suspect]
     Active Substance: CYCLOPHOSPHAMIDE
     Indication: Plasmacytosis
     Dosage: UNK (R-CHOP THERAPIES)
     Route: 065
  8. CYCLOPHOSPHAMIDE [Suspect]
     Active Substance: CYCLOPHOSPHAMIDE
     Dosage: UNK (R-CHOEP THERAPIES)
     Route: 065
  9. RITUXIMAB [Suspect]
     Active Substance: RITUXIMAB
     Indication: Follicular lymphoma
     Dosage: UNK (MONOTHERAPY)
     Route: 065
  10. RITUXIMAB [Suspect]
     Active Substance: RITUXIMAB
     Indication: Plasmacytosis
     Dosage: UNK 9RCVP THERAPY)
     Route: 065
  11. RITUXIMAB [Suspect]
     Active Substance: RITUXIMAB
     Dosage: UNK (R-CHOP THERAPIES)
     Route: 065
  12. RITUXIMAB [Suspect]
     Active Substance: RITUXIMAB
     Dosage: UNK (R-CHOEP THERAPIES)
     Route: 065
  13. VINCRISTINE [Suspect]
     Active Substance: VINCRISTINE
     Indication: Follicular lymphoma
     Dosage: UNK (RCVP THERAPIES)
     Route: 065
  14. VINCRISTINE [Suspect]
     Active Substance: VINCRISTINE
     Indication: Plasmacytosis
     Dosage: UNK (R-CHOP THERAPIES)
     Route: 065
  15. VINCRISTINE [Suspect]
     Active Substance: VINCRISTINE
     Dosage: UNK (R-CHOEP THERAPIES)
     Route: 065
  16. DOXORUBICIN [Concomitant]
     Active Substance: DOXORUBICIN
     Indication: Follicular lymphoma
     Dosage: UNK (R-CHOP THERAPIES)
     Route: 065
  17. DOXORUBICIN [Concomitant]
     Active Substance: DOXORUBICIN
     Indication: Plasmacytosis
     Dosage: UNK (R-CHOEP THERAPIES)
     Route: 065
  18. BORTEZOMIB [Concomitant]
     Active Substance: BORTEZOMIB
     Indication: Follicular lymphoma
     Dosage: UNK
     Route: 065
  19. BORTEZOMIB [Concomitant]
     Active Substance: BORTEZOMIB
     Indication: Plasmacytosis

REACTIONS (2)
  - Drug ineffective [Unknown]
  - Off label use [Unknown]
